FAERS Safety Report 12565839 (Version 1)
Quarter: 2016Q3

REPORT INFORMATION
  Report Type: Spontaneous
  Country: BR (occurrence: BR)
  Receive Date: 20160718
  Receipt Date: 20160718
  Transmission Date: 20161109
  Serious: Yes (Other)
  Sender: FDA-Public Use
  Company Number: PHHY2016BR097413

PATIENT
  Sex: Male
  Weight: 56 kg

DRUGS (1)
  1. SANDIMMUN NEORAL [Suspect]
     Active Substance: CYCLOSPORINE
     Indication: RENAL TRANSPLANT
     Dosage: 175 MG (100 MG IN THE MORNING AND 75 MG AT NIGHT) (25 MG, 50 MG AND 100 MG CAPSULES)
     Route: 048

REACTIONS (1)
  - Hernia [Unknown]
